FAERS Safety Report 9470502 (Version 2)
Quarter: 2013Q3

REPORT INFORMATION
  Report Type: Spontaneous
  Country: GB (occurrence: None)
  Receive Date: 20130815
  Receipt Date: 20130821
  Transmission Date: 20140515
  Serious: Yes (Other)
  Sender: FDA-Public Use
  Company Number: AUR-APL-2011-04844

PATIENT
  Age: 35 Year
  Sex: Female

DRUGS (2)
  1. CLOPIDOGREL [Suspect]
     Indication: PROPHYLAXIS
  2. ACETYLSALICYLIC ACID (ACETYLSALICYLIC ACID) [Suspect]
     Indication: PROPHYLAXIS

REACTIONS (5)
  - Epistaxis [None]
  - Polycythaemia [None]
  - Thrombocytopenia [None]
  - Pulmonary haemorrhage [None]
  - Platelet dysfunction [None]
